FAERS Safety Report 25859838 (Version 1)
Quarter: 2025Q3

REPORT INFORMATION
  Report Type: Spontaneous
  Country: US (occurrence: None)
  Receive Date: 20250926
  Receipt Date: 20250926
  Transmission Date: 20251021
  Serious: Yes (Life-Threatening, Hospitalization, Disabling, Other)
  Sender: FDA-CTU
  Company Number: None

PATIENT
  Age: 39 Year
  Sex: Female
  Weight: 68.85 kg

DRUGS (15)
  1. SEMAGLUTIDE [Suspect]
     Active Substance: SEMAGLUTIDE
     Indication: Weight decreased
     Route: 050
     Dates: start: 20250505, end: 20250602
  2. SEMAGLUTIDE [Suspect]
     Active Substance: SEMAGLUTIDE
  3. AMITRIPTYLINE [Concomitant]
     Active Substance: AMITRIPTYLINE
  4. HYOSCYAMINE [Concomitant]
     Active Substance: HYOSCYAMINE
  5. ADAPALENE [Concomitant]
     Active Substance: ADAPALENE
  6. TRETINOIN [Concomitant]
     Active Substance: TRETINOIN
  7. Clobetasol Diproprionate [Concomitant]
  8. ESTRADIOL [Concomitant]
     Active Substance: ESTRADIOL
  9. Cystomend [Concomitant]
  10. Arrae Tribiotic [Concomitant]
  11. O.N.E. [Concomitant]
  12. Multivitamin or Swanson Multi Plus Energy [Concomitant]
  13. VITAMIN K [Concomitant]
     Active Substance: PHYTONADIONE
  14. ProOmega 650 EPA/450 DHA [Concomitant]
  15. Arrae MB-1 [Concomitant]

REACTIONS (18)
  - Vertigo [None]
  - Nausea [None]
  - Brain fog [None]
  - Dizziness [None]
  - Fatigue [None]
  - Feeling jittery [None]
  - Tremor [None]
  - Peripheral coldness [None]
  - Memory impairment [None]
  - Confusional state [None]
  - Loss of consciousness [None]
  - Impaired driving ability [None]
  - Somnolence [None]
  - Memory impairment [None]
  - Amnesia [None]
  - Anxiety [None]
  - Blood arsenic increased [None]
  - Blood creatinine increased [None]

NARRATIVE: CASE EVENT DATE: 20250623
